FAERS Safety Report 4277544-9 (Version None)
Quarter: 2004Q1

REPORT INFORMATION
  Report Type: 
  Country: None (occurrence: None)
  Receive Date: 20040121
  Receipt Date: 20040113
  Transmission Date: 20041129
  Serious: Yes (Death)
  Sender: FDA-Public Use
  Company Number: HQWYE437104DEC03

PATIENT
  Age: 34 Year
  Sex: Male

DRUGS (3)
  1. RAPAMUNE [Suspect]
     Indication: PROPHYLAXIS AGAINST TRANSPLANT REJECTION
     Dosage: ORAL
     Route: 048
     Dates: start: 20031126, end: 20030101
  2. PROGRAF [Concomitant]
  3. CELLCEPT [Concomitant]

REACTIONS (4)
  - ACUTE RESPIRATORY DISTRESS SYNDROME [None]
  - HAEMOLYTIC URAEMIC SYNDROME [None]
  - PNEUMONITIS [None]
  - THROMBOTIC THROMBOCYTOPENIC PURPURA [None]
